FAERS Safety Report 17795111 (Version 3)
Quarter: 2020Q2

REPORT INFORMATION
  Report Type: Report from Study
  Country: IT (occurrence: IT)
  Receive Date: 20200515
  Receipt Date: 20200605
  Transmission Date: 20200714
  Serious: Yes (Life-Threatening, Hospitalization)
  Sender: FDA-Public Use
  Company Number: IT-EISAI MEDICAL RESEARCH-EC-2020-074697

PATIENT
  Age: 83 Year
  Sex: Male
  Weight: 66 kg

DRUGS (13)
  1. LENVATINIB [Suspect]
     Active Substance: LENVATINIB
     Route: 048
     Dates: start: 20200428, end: 20200505
  2. DAPAROX [Concomitant]
     Active Substance: PAROXETINE
     Dates: start: 201501
  3. LEVOPRAID [Concomitant]
     Dates: start: 20191210
  4. PLACEBO [Suspect]
     Active Substance: UNSPECIFIED INGREDIENT
     Route: 041
     Dates: start: 20200428, end: 20200428
  5. PANTOPRAZOLE [Concomitant]
     Active Substance: PANTOPRAZOLE
     Dates: start: 201804
  6. CARDIOASPIRIN [Concomitant]
     Active Substance: ASPIRIN
     Dates: start: 201912
  7. REMERON [Concomitant]
     Active Substance: MIRTAZAPINE
     Dates: start: 201501
  8. PLACEBO [Suspect]
     Active Substance: UNSPECIFIED INGREDIENT
     Indication: HEPATOCELLULAR CARCINOMA
     Route: 041
     Dates: start: 20200113, end: 20200407
  9. LENVATINIB [Suspect]
     Active Substance: LENVATINIB
     Indication: HEPATOCELLULAR CARCINOMA
     Dosage: FLUCTUATED DOSE
     Route: 048
     Dates: start: 20200113, end: 20200427
  10. INDERAL [Concomitant]
     Active Substance: PROPRANOLOL HYDROCHLORIDE
     Dates: start: 20200116
  11. XANAX [Concomitant]
     Active Substance: ALPRAZOLAM
     Dates: start: 201501
  12. METFORAL [Concomitant]
     Active Substance: METFORMIN HYDROCHLORIDE
     Dates: start: 201701
  13. COTAREG [Concomitant]
     Active Substance: HYDROCHLOROTHIAZIDE\VALSARTAN
     Dates: start: 20200226

REACTIONS (1)
  - Oesophageal varices haemorrhage [Recovered/Resolved]

NARRATIVE: CASE EVENT DATE: 20200510
